FAERS Safety Report 15335208 (Version 3)
Quarter: 2018Q4

REPORT INFORMATION
  Report Type: Spontaneous
  Country: US (occurrence: US)
  Receive Date: 20180830
  Receipt Date: 20181227
  Transmission Date: 20190204
  Serious: Yes (Death, Hospitalization)
  Sender: FDA-Public Use
  Company Number: US-VIFOR (INTERNATIONAL) INC.-VIT-2018-08440

PATIENT
  Age: 69 Year
  Sex: Female

DRUGS (27)
  1. VELTASSA [Suspect]
     Active Substance: PATIROMER
     Indication: TYPE 2 DIABETES MELLITUS
  2. VOLTAREN [Concomitant]
     Active Substance: DICLOFENAC SODIUM
  3. ARTIFICIAL TEARS [Concomitant]
     Active Substance: GLYCERIN\HYPROMELLOSES\POLYETHYLENE GLYCOL 400
  4. SYSTANE CONTACTS [Concomitant]
     Active Substance: DEXTRAN\HYPROMELLOSES
  5. MIDODRINE HCL [Concomitant]
     Active Substance: MIDODRINE HYDROCHLORIDE
  6. CLARITIN [Concomitant]
     Active Substance: LORATADINE
  7. SENSIPAR [Concomitant]
     Active Substance: CINACALCET HYDROCHLORIDE
  8. MILK OF MAGNESIA [Concomitant]
     Active Substance: MAGNESIUM HYDROXIDE
  9. TYLENOL [Concomitant]
     Active Substance: ACETAMINOPHEN
  10. RENVELA [Concomitant]
     Active Substance: SEVELAMER CARBONATE
  11. PREDNISONE. [Concomitant]
     Active Substance: PREDNISONE
  12. DEPAKOTE [Concomitant]
     Active Substance: DIVALPROEX SODIUM
  13. NORCO [Concomitant]
     Active Substance: ACETAMINOPHEN\HYDROCODONE BITARTRATE
  14. XANAX [Concomitant]
     Active Substance: ALPRAZOLAM
  15. LEFLUNOMIDE. [Concomitant]
     Active Substance: LEFLUNOMIDE
  16. ASPIRIN CHILDREN [Concomitant]
     Active Substance: ASPIRIN
  17. REMERON [Concomitant]
     Active Substance: MIRTAZAPINE
  18. VELTASSA [Suspect]
     Active Substance: PATIROMER
     Indication: HYPERKALAEMIA
     Route: 048
     Dates: start: 20170926, end: 20181218
  19. VELTASSA [Suspect]
     Active Substance: PATIROMER
     Indication: DIABETIC NEUROPATHY
  20. TESSALON [Concomitant]
     Active Substance: BENZONATATE
  21. DULOXETINE HCL [Concomitant]
     Active Substance: DULOXETINE HYDROCHLORIDE
  22. PROCTOFOAM HC [Concomitant]
     Active Substance: HYDROCORTISONE ACETATE\PRAMOXINE HYDROCHLORIDE
  23. PERPHENAZINE. [Concomitant]
     Active Substance: PERPHENAZINE
  24. VELTASSA [Suspect]
     Active Substance: PATIROMER
     Indication: END STAGE RENAL DISEASE
  25. SYNTHROID [Concomitant]
     Active Substance: LEVOTHYROXINE SODIUM
  26. NEURONTIN [Concomitant]
     Active Substance: GABAPENTIN
  27. ONDANSETRON HCL [Concomitant]
     Active Substance: ONDANSETRON HYDROCHLORIDE

REACTIONS (3)
  - Hospitalisation [Unknown]
  - Hypotension [Unknown]
  - Death [Fatal]

NARRATIVE: CASE EVENT DATE: 20180902
